FAERS Safety Report 7892981-9 (Version None)
Quarter: 2011Q4

REPORT INFORMATION
  Report Type: 
  Country: None (occurrence: None)
  Receive Date: 20111104
  Receipt Date: 20111021
  Transmission Date: 20120403
  Serious: Yes (Hospitalization, Other)
  Sender: FDA-Public Use
  Company Number: JP-SANOFI-AVENTIS-2011SA066554

PATIENT
  Age: 69 Year
  Sex: Male
  Weight: 58.7 kg

DRUGS (14)
  1. TAXOTERE [Suspect]
     Route: 041
     Dates: start: 20100507, end: 20100507
  2. TAXOTERE [Suspect]
     Route: 041
     Dates: start: 20091020, end: 20091125
  3. TAXOTERE [Suspect]
     Route: 041
     Dates: start: 20100507, end: 20100507
  4. TAXOTERE [Suspect]
     Route: 041
     Dates: start: 20100706, end: 20100706
  5. CARVEDILOL [Concomitant]
     Indication: HYPERTENSION
     Route: 048
  6. TAXOTERE [Suspect]
     Dosage: SECOND COURSE AND DOSE CONTINUED TO TOATL 11 COURSES.
     Route: 041
     Dates: start: 20100602, end: 20100602
  7. TAXOTERE [Suspect]
     Indication: GASTRIC CANCER
     Route: 041
     Dates: start: 20091020, end: 20091125
  8. ALLOPURINOL [Concomitant]
     Indication: HYPERURICAEMIA
     Route: 048
  9. TAXOTERE [Suspect]
     Route: 041
     Dates: start: 20100706, end: 20100706
  10. TAXOTERE [Suspect]
     Dosage: SECOND COURSE AND DOSE CONTINUED TO TOATL 11 COURSES.
     Route: 041
     Dates: start: 20100602, end: 20100602
  11. AMLODIPINE [Concomitant]
     Indication: HYPERTENSION
     Route: 048
  12. THERAPEUTIC RADIOPHARMACEUTICALS [Suspect]
     Indication: GASTRIC CANCER
     Dosage: 2 GY/FR, IN TOTAL OF 60 GY
     Route: 065
     Dates: start: 20091020, end: 20091202
  13. THERAPEUTIC RADIOPHARMACEUTICALS [Suspect]
     Dosage: 2 GY/FR, IN TOTAL OF 60 GY
     Route: 065
     Dates: start: 20091020, end: 20091202
  14. ALFAROL [Concomitant]
     Indication: RENAL FAILURE
     Route: 048

REACTIONS (5)
  - RADIATION PNEUMONITIS [None]
  - RENAL TUBULAR DISORDER [None]
  - PYREXIA [None]
  - BETA 2 MICROGLOBULIN INCREASED [None]
  - HAEMATOTOXICITY [None]
